FAERS Safety Report 8401614-4 (Version None)
Quarter: 2012Q2

REPORT INFORMATION
  Report Type: 
  Country: None (occurrence: None)
  Receive Date: 20120601
  Receipt Date: 20120319
  Transmission Date: 20120825
  Serious: Yes (Life-Threatening, Hospitalization, Other)
  Sender: FDA-Public Use
  Company Number: CN-ROXANE LABORATORIES, INC.-2012-EU-01545GD

PATIENT
  Age: 32 Year
  Sex: Male

DRUGS (4)
  1. MIDAZOLAM [Suspect]
  2. KETAMINE HCL [Suspect]
  3. DEXTROMETHORPHAN HYDROBROMIDE [Suspect]
     Dosage: 30 TABLETS
     Route: 048
  4. FLUPHENAZINE DECANOATE [Concomitant]
     Indication: SCHIZOPHRENIA
     Dosage: 0.8333 MG

REACTIONS (7)
  - RHABDOMYOLYSIS [None]
  - COORDINATION ABNORMAL [None]
  - FOLATE DEFICIENCY [None]
  - CONFUSIONAL STATE [None]
  - DRUG ABUSE [None]
  - SUBSTANCE ABUSE [None]
  - LEUKOCYTOSIS [None]
